FAERS Safety Report 7782996-3 (Version None)
Quarter: 2011Q3

REPORT INFORMATION
  Report Type: 
  Country: None (occurrence: None)
  Receive Date: 20110928
  Receipt Date: 20110920
  Transmission Date: 20111222
  Serious: Yes (Hospitalization)
  Sender: FDA-Public Use
  Company Number: ES-UCBSA-041755

PATIENT
  Age: 5 Year
  Sex: Male

DRUGS (3)
  1. CLOBAZAM [Concomitant]
     Indication: MYOCLONIC EPILEPSY
     Dosage: TOTAL DAILY DOSE:20MG
     Route: 048
  2. KEPPRA [Suspect]
     Indication: MYOCLONIC EPILEPSY
     Dosage: TOTAL DAILY DOSE: 300MG (100MG/ML (BOTTLE 150ML, SYRINGE 1ML))
     Route: 048
     Dates: start: 20110701, end: 20110808
  3. DEPAKENE [Concomitant]
     Indication: MYOCLONIC EPILEPSY
     Dosage: TOTAL DAILY DOSE :800MG (200MG/ML ORAL SOLUTION (BOTTLE 60ML))
     Route: 048

REACTIONS (4)
  - THROMBOCYTOPENIA [None]
  - HAEMATOMA [None]
  - PETECHIAE [None]
  - MOUTH HAEMORRHAGE [None]
